FAERS Safety Report 4372954-3 (Version None)
Quarter: 2004Q2

REPORT INFORMATION
  Report Type: 
  Country: None (occurrence: None)
  Receive Date: 20040603
  Receipt Date: 20040529
  Transmission Date: 20050107
  Serious: Yes (Other)
  Sender: FDA-Public Use
  Company Number: GBWYE794501JUN04

PATIENT

DRUGS (1)
  1. EFFEXOR [Suspect]

REACTIONS (2)
  - SELF MUTILATION [None]
  - SKIN LACERATION [None]
